FAERS Safety Report 4708007-1 (Version None)
Quarter: 2005Q3

REPORT INFORMATION
  Report Type: 
  Country: None (occurrence: None)
  Receive Date: 20050707
  Receipt Date: 20050627
  Transmission Date: 20060218
  Serious: Yes (Other)
  Sender: FDA-Public Use
  Company Number: IL-BRISTOL-MYERS SQUIBB COMPANY-13027206

PATIENT
  Age: 22 Year
  Sex: Female

DRUGS (3)
  1. METHOTREXATE [Suspect]
     Indication: BONE SARCOMA
  2. DOXORUBICIN HCL [Suspect]
     Indication: BONE SARCOMA
  3. IFOSFAMIDE [Suspect]
     Indication: BONE SARCOMA

REACTIONS (1)
  - ERYTHEMA [None]
